FAERS Safety Report 8956612 (Version 1)
Quarter: 2012Q4

REPORT INFORMATION
  Report Type: 
  Country: DE (occurrence: DE)
  Receive Date: 20121210
  Receipt Date: 20121210
  Transmission Date: 20130627
  Serious: Yes (Other)
  Sender: FDA-Public Use
  Company Number: DE-PFIZER INC-2012302982

PATIENT
  Age: 49 Year
  Sex: Female
  Weight: 51 kg

DRUGS (1)
  1. AMPICILLIN SODIUM\SULBACTAM SODIUM [Suspect]
     Indication: RESPIRATORY TRACT INFECTION
     Dosage: 2 g, 3x/day
     Route: 042
     Dates: start: 20120717, end: 20120720

REACTIONS (2)
  - Transaminases increased [Recovering/Resolving]
  - Blood alkaline phosphatase increased [None]
